FAERS Safety Report 9437390 (Version 2)
Quarter: 2013Q3

REPORT INFORMATION
  Report Type: Spontaneous
  Country: DE (occurrence: DE)
  Receive Date: 20130802
  Receipt Date: 20130904
  Transmission Date: 20140515
  Serious: Yes (Other)
  Sender: FDA-Public Use
  Company Number: DE-BAYER-2013-093247

PATIENT
  Age: 50 Year
  Sex: Female

DRUGS (3)
  1. MIRENA [Suspect]
     Indication: MENORRHAGIA
     Dosage: 20 MCG/24HR, CONT
     Route: 015
     Dates: start: 20121214, end: 20130802
  2. MIRENA [Suspect]
     Indication: CONTRACEPTION
  3. DUPHASTON [Suspect]
     Dosage: 10 MG, UNK
     Dates: start: 20130719, end: 20130726

REACTIONS (1)
  - Retinal vein thrombosis [Recovering/Resolving]
